FAERS Safety Report 7345044-5 (Version None)
Quarter: 2011Q1

REPORT INFORMATION
  Report Type: 
  Country: None (occurrence: None)
  Receive Date: 20110310
  Receipt Date: 20110228
  Transmission Date: 20110831
  Serious: Yes (Hospitalization)
  Sender: FDA-Public Use
  Company Number: US-ELI_LILLY_AND_COMPANY-US201011002971

PATIENT
  Sex: Female
  Weight: 64.671 kg

DRUGS (11)
  1. FORTEO [Suspect]
     Dosage: 20 UG, DAILY (1/D)
     Route: 058
     Dates: start: 20100112
  2. LEVOTHYROXINE [Concomitant]
     Dosage: UNK, UNKNOWN
     Route: 065
  3. ADVAIR DISKUS 100/50 [Concomitant]
     Dosage: UNK, UNKNOWN
     Route: 065
  4. LOVASTATIN [Concomitant]
     Dosage: UNK, UNKNOWN
     Route: 065
  5. ERGOCALCIFEROL [Concomitant]
     Dosage: UNK, UNKNOWN
     Route: 065
  6. OXYBUTYNIN [Concomitant]
     Dosage: UNK, UNKNOWN
     Route: 065
  7. DIOVAN [Concomitant]
     Dosage: UNK, UNKNOWN
     Route: 065
  8. KLOR-CON [Concomitant]
     Dosage: UNK, UNKNOWN
     Route: 065
  9. IPRATROPIUM BROMIDE [Concomitant]
     Dosage: UNK, UNKNOWN
     Route: 065
  10. CALCIUM [Concomitant]
  11. ATENOLOL [Concomitant]
     Dosage: UNK, UNKNOWN
     Route: 065

REACTIONS (1)
  - NEPHROLITHIASIS [None]
